FAERS Safety Report 9438629 (Version 1)
Quarter: 2013Q3

REPORT INFORMATION
  Report Type: Spontaneous
  Country: US (occurrence: US)
  Receive Date: 20130802
  Receipt Date: 20130802
  Transmission Date: 20140515
  Serious: Yes (Other)
  Sender: FDA-Public Use
  Company Number: US-BAYER-2013-091335

PATIENT
  Sex: Male

DRUGS (1)
  1. ALEVE CAPLET [Suspect]
     Dosage: 3-4 PILLS, EVERY 4-5 HOURS
     Route: 048

REACTIONS (4)
  - Renal impairment [None]
  - Incorrect dose administered [None]
  - Inappropriate schedule of drug administration [None]
  - Incorrect drug administration duration [None]
